FAERS Safety Report 4977576-9 (Version None)
Quarter: 2006Q2

REPORT INFORMATION
  Report Type: 
  Country: None (occurrence: None)
  Receive Date: 20060420
  Receipt Date: 20060406
  Transmission Date: 20061013
  Serious: Yes (Death)
  Sender: FDA-Public Use
  Company Number: GB-JNJFOC-20060201065

PATIENT
  Sex: Male

DRUGS (8)
  1. RISPERDAL [Suspect]
     Indication: DRUG USE FOR UNKNOWN INDICATION
     Route: 065
  2. RISPERIDONE [Suspect]
     Indication: DRUG USE FOR UNKNOWN INDICATION
  3. OLANZAPINE [Suspect]
  4. OLANZAPINE [Suspect]
  5. OLANZAPINE [Suspect]
  6. OLANZAPINE [Suspect]
     Indication: DRUG USE FOR UNKNOWN INDICATION
  7. LORAZEPAM [Concomitant]
     Indication: ANXIETY
  8. ZOPICLONE [Concomitant]
     Indication: INSOMNIA

REACTIONS (15)
  - AGGRESSION [None]
  - AGITATION [None]
  - AKATHISIA [None]
  - ANTISOCIAL BEHAVIOUR [None]
  - ANXIETY [None]
  - COMPLETED SUICIDE [None]
  - CONDITION AGGRAVATED [None]
  - DISTURBANCE IN SOCIAL BEHAVIOUR [None]
  - INAPPROPRIATE AFFECT [None]
  - INSOMNIA [None]
  - IRRITABILITY [None]
  - REGRESSIVE BEHAVIOUR [None]
  - RESTLESSNESS [None]
  - SUICIDAL IDEATION [None]
  - TREATMENT NONCOMPLIANCE [None]
